FAERS Safety Report 18953543 (Version 2)
Quarter: 2021Q1

REPORT INFORMATION
  Report Type: Spontaneous
  Country: FR (occurrence: FR)
  Receive Date: 20210301
  Receipt Date: 20210316
  Transmission Date: 20210420
  Serious: Yes (Hospitalization)
  Sender: FDA-Public Use
  Company Number: FR-ELI_LILLY_AND_COMPANY-FR202102011782

PATIENT
  Sex: Female

DRUGS (2)
  1. GLUCOSE [Concomitant]
     Active Substance: DEXTROSE
     Indication: PRODUCT USED FOR UNKNOWN INDICATION
     Dosage: UNK, UNKNOWN
     Route: 065
  2. ALIMTA [Suspect]
     Active Substance: PEMETREXED DISODIUM
     Indication: BRONCHIAL NEOPLASM
     Dosage: UNK UNK, UNKNOWN
     Route: 065
     Dates: start: 20201201

REACTIONS (3)
  - Hypoglycaemia [Unknown]
  - Epilepsy [Unknown]
  - Seizure [Unknown]
